FAERS Safety Report 4424376-4 (Version None)
Quarter: 2004Q3

REPORT INFORMATION
  Report Type: 
  Country: None (occurrence: None)
  Receive Date: 20040812
  Receipt Date: 20040805
  Transmission Date: 20050211
  Serious: Yes (Hospitalization)
  Sender: FDA-Public Use
  Company Number: US-JNJFOC-20040801333

PATIENT
  Age: 17 Year
  Sex: Female
  Weight: 50 kg

DRUGS (2)
  1. TOPAMAX [Suspect]
     Indication: DRUG USE FOR UNKNOWN INDICATION
     Dosage: PATIENT INTENTIONALLY INGESTED EIGHT 100 MG TABLETS FOR THE PURPOSE OF ^GETTING HIGH^.
     Route: 049
  2. MEDROXYPROGESTERONE [Concomitant]
     Route: 050

REACTIONS (14)
  - AGGRESSION [None]
  - AMNESIA [None]
  - APHASIA [None]
  - COMA [None]
  - CONFUSIONAL STATE [None]
  - CRYING [None]
  - INAPPROPRIATE AFFECT [None]
  - MYDRIASIS [None]
  - PSYCHOMOTOR AGITATION [None]
  - PSYCHOMOTOR RETARDATION [None]
  - REPETITIVE SPEECH [None]
  - SOMNOLENCE [None]
  - SPEECH DISORDER [None]
  - THINKING ABNORMAL [None]
